FAERS Safety Report 15570097 (Version 3)
Quarter: 2019Q1

REPORT INFORMATION
  Report Type: Spontaneous
  Country: DE (occurrence: DE)
  Receive Date: 20181031
  Receipt Date: 20190109
  Transmission Date: 20190417
  Serious: Yes (Other)
  Sender: FDA-Public Use
  Company Number: DE-GLENMARK PHARMACEUTICALS-2018GMK037990

PATIENT

DRUGS (1)
  1. OLMESARTAN MEDOXOMIL. [Suspect]
     Active Substance: OLMESARTAN MEDOXOMIL
     Indication: HYPERTENSION
     Dosage: 10 MG, QD (1 TABLET/ MORNING WITH WATER ONLY)
     Route: 048

REACTIONS (6)
  - Product substitution issue [Unknown]
  - Chest pain [Recovered/Resolved]
  - Impaired driving ability [Recovered/Resolved]
  - Angina pectoris [Recovered/Resolved]
  - Chest discomfort [Recovered/Resolved]
  - Apathy [Recovered/Resolved]
